FAERS Safety Report 15946126 (Version 1)
Quarter: 2019Q1

REPORT INFORMATION
  Report Type: Spontaneous
  Country: US (occurrence: US)
  Receive Date: 20190211
  Receipt Date: 20190211
  Transmission Date: 20190417
  Serious: No
  Sender: FDA-Public Use
  Company Number: US-ASTRAZENECA-2019SE19354

PATIENT
  Sex: Female

DRUGS (2)
  1. FASENRA [Suspect]
     Active Substance: BENRALIZUMAB
     Indication: ASTHMA
     Dosage: ONCE EVERY 4 WEEKS FOR THE FIRST 3 DOSES AND THEN ONCE EVERY 8 WEEKS THEREAFTER
     Route: 058
     Dates: start: 20181206
  2. PREDNISONE. [Concomitant]
     Active Substance: PREDNISONE
     Route: 065

REACTIONS (3)
  - Pain [Recovered/Resolved]
  - Burning sensation [Recovered/Resolved]
  - Arthralgia [Recovered/Resolved]
